FAERS Safety Report 13535045 (Version 1)
Quarter: 2017Q2

REPORT INFORMATION
  Report Type: Spontaneous
  Country: PL (occurrence: PL)
  Receive Date: 20170511
  Receipt Date: 20170511
  Transmission Date: 20170830
  Serious: Yes (Death, Other)
  Sender: FDA-Public Use
  Company Number: PL-MYLANLABS-2017M1028077

PATIENT

DRUGS (10)
  1. MORPHINE [Suspect]
     Active Substance: MORPHINE
     Indication: ABDOMINAL PAIN
     Dosage: 0.5% WATER SOLUTION, 0.5 ML OF THE SOLUTION (2.5 MG), AS NEEDED; DOSE INCREASED TO 5MG, 4HOURLY
     Route: 048
     Dates: start: 20120615
  2. TRAMADOL. [Suspect]
     Active Substance: TRAMADOL
     Indication: ABDOMINAL PAIN
     Dosage: (SHORT ACTING) 50MG EVERY 6-8 HOURS
     Route: 048
     Dates: start: 20120606
  3. INSULIN [Concomitant]
     Active Substance: INSULIN NOS
     Indication: TYPE 2 DIABETES MELLITUS
     Route: 065
  4. MORPHINE [Suspect]
     Active Substance: MORPHINE
     Dosage: REGULAR DOSE
     Route: 048
     Dates: start: 20120621
  5. VALPROATE [Concomitant]
     Active Substance: VALPROIC ACID
     Indication: EPILEPSY
     Route: 065
  6. MORPHINE [Suspect]
     Active Substance: MORPHINE
     Dosage: INITIALLY, 8HOURLY AND THEN 6HOURLY (DOSE NOT STATED)
     Route: 058
  7. MORPHINE [Suspect]
     Active Substance: MORPHINE
     Dosage: 10 MG/DAY; EVERY 4 HOURS
     Route: 058
     Dates: start: 20120817
  8. TRAMADOL. [Suspect]
     Active Substance: TRAMADOL
     Dosage: CONTROLLED RELEASE 400MG/DAY
     Route: 065
  9. TRAMADOL. [Suspect]
     Active Substance: TRAMADOL
     Dosage: 50-75MG; AS NECESSARY
  10. OXYCODONE [Suspect]
     Active Substance: OXYCODONE
     Indication: ABDOMINAL PAIN
     Dosage: CONTROLLED RELEASE TABLET
     Route: 065
     Dates: start: 20120807

REACTIONS (2)
  - Pyrexia [Not Recovered/Not Resolved]
  - Epilepsy [Unknown]
